FAERS Safety Report 24846268 (Version 3)
Quarter: 2025Q1

REPORT INFORMATION
  Report Type: Report from Study
  Country: BE (occurrence: BE)
  Receive Date: 20250115
  Receipt Date: 20250224
  Transmission Date: 20250408
  Serious: Yes (Hospitalization)
  Sender: NOVARTIS
  Company Number: BE-002147023-NVSC2024BE236192

PATIENT
  Sex: Female
  Weight: 2.76 kg

DRUGS (2)
  1. KESIMPTA [Suspect]
     Active Substance: OFATUMUMAB
     Indication: Foetal exposure during pregnancy
     Route: 064
  2. KESIMPTA [Suspect]
     Active Substance: OFATUMUMAB
     Route: 064

REACTIONS (2)
  - Premature baby [Unknown]
  - Viral rhinitis [Unknown]

NARRATIVE: CASE EVENT DATE: 20240903
